FAERS Safety Report 9752958 (Version 1)
Quarter: 2013Q4

REPORT INFORMATION
  Report Type: Spontaneous
  Country: US (occurrence: None)
  Receive Date: 20131211
  Receipt Date: 20131211
  Transmission Date: 20140711
  Serious: Yes (Hospitalization)
  Sender: FDA-Public Use
  Company Number: PD-193

PATIENT
  Age: 18 Year
  Sex: Female

DRUGS (1)
  1. CETIRIZINE [Suspect]
     Indication: RHINITIS ALLERGIC
     Route: 048

REACTIONS (7)
  - Suicidal ideation [None]
  - Delusion [None]
  - Depression [None]
  - Anxiety [None]
  - Disturbance in attention [None]
  - Decreased appetite [None]
  - Insomnia [None]
